FAERS Safety Report 6307776-7 (Version None)
Quarter: 2009Q3

REPORT INFORMATION
  Report Type: 
  Country: None (occurrence: None)
  Receive Date: 20090813
  Receipt Date: 20090803
  Transmission Date: 20100115
  Serious: Yes (Hospitalization)
  Sender: FDA-Public Use
  Company Number: BR-NOVOPROD-289644

PATIENT
  Age: 53 Year
  Sex: Male
  Weight: 58 kg

DRUGS (5)
  1. NOVOLOG [Suspect]
     Indication: TYPE 2 DIABETES MELLITUS
     Dosage: 4 TO 5 U, TID
     Route: 058
  2. LANTUS [Concomitant]
     Indication: DIABETES MELLITUS
     Dosage: 15 TO 20 U
     Route: 058
  3. METFORMIN [Concomitant]
     Indication: DIABETES MELLITUS
     Dosage: 1 TAB, UNK
     Route: 048
  4. CARVEDILOL [Concomitant]
     Indication: CARDIAC FAILURE
     Dosage: 2 TAB, UNK
     Route: 048
  5. ACID ACETYLSALICYLIC [Concomitant]
     Dosage: 1 TAB, UNK
     Route: 048

REACTIONS (3)
  - BLOOD GLUCOSE INCREASED [None]
  - HYPERSENSITIVITY [None]
  - NEUROPATHY PERIPHERAL [None]
